FAERS Safety Report 13169831 (Version 2)
Quarter: 2017Q1

REPORT INFORMATION
  Report Type: Spontaneous
  Country: IT (occurrence: IT)
  Receive Date: 20170201
  Receipt Date: 20170228
  Transmission Date: 20170428
  Serious: Yes (Other)
  Sender: FDA-Public Use
  Company Number: PHHY2017IT013137

PATIENT
  Sex: Male

DRUGS (5)
  1. ZOLEDRONIC ACID [Suspect]
     Active Substance: ZOLEDRONIC ACID
     Indication: CLEAR CELL RENAL CELL CARCINOMA
     Dosage: 4 MG, UNK
     Route: 065
  2. EVEROLIMUS [Suspect]
     Active Substance: EVEROLIMUS
     Indication: CLEAR CELL RENAL CELL CARCINOMA
     Dosage: 10 MG, QD
     Route: 065
  3. PREDNISONE. [Concomitant]
     Active Substance: PREDNISONE
     Indication: PRODUCT USED FOR UNKNOWN INDICATION
     Dosage: 0.5 MG/KG, UNK
     Route: 065
  4. SUNITINIB [Suspect]
     Active Substance: SUNITINIB
     Indication: CLEAR CELL RENAL CELL CARCINOMA
     Dosage: 50 MG, (4 WEEKS ON /2 WEEKS OFF)
     Route: 065
     Dates: start: 2008
  5. SUNITINIB [Suspect]
     Active Substance: SUNITINIB
     Dosage: 50 MG, (4 WEEKS ON /1 WEEKS OFF)
     Route: 065
     Dates: start: 2008

REACTIONS (13)
  - Interstitial lung disease [Unknown]
  - Clear cell renal cell carcinoma [Unknown]
  - Neoplasm progression [Unknown]
  - Metastases to bone [Unknown]
  - Pain [Unknown]
  - Hypertension [Unknown]
  - Fatigue [Unknown]
  - Osteolysis [Unknown]
  - Malignant neoplasm progression [Unknown]
  - Metastases to spine [Unknown]
  - Hypothyroidism [Unknown]
  - Condition aggravated [Unknown]
  - Palmar-plantar erythrodysaesthesia syndrome [Unknown]

NARRATIVE: CASE EVENT DATE: 201111
